FAERS Safety Report 13292396 (Version 1)
Quarter: 2017Q1

REPORT INFORMATION
  Report Type: Spontaneous
  Country: FR (occurrence: FR)
  Receive Date: 20170303
  Receipt Date: 20170303
  Transmission Date: 20170428
  Serious: Yes (Hospitalization, Other)
  Sender: FDA-Public Use
  Company Number: FR-PFIZER INC-2017089196

PATIENT
  Age: 94 Year
  Sex: Male

DRUGS (3)
  1. OFLOCET /00731801/ [Concomitant]
     Active Substance: OFLOXACIN
     Indication: OSTEITIS
     Dosage: 200 MG, 2X/DAY
     Route: 048
     Dates: start: 20161213, end: 20161227
  2. ZYVOXID [Suspect]
     Active Substance: LINEZOLID
     Indication: OSTEITIS
     Dosage: 600 MG, 2X/DAY
     Route: 048
     Dates: start: 20161227, end: 20170113
  3. RIFADINE /00146901/ [Concomitant]
     Active Substance: RIFAMPIN
     Indication: OSTEITIS
     Dosage: 300 MG, 3X/DAY
     Dates: start: 20161212, end: 20161227

REACTIONS (6)
  - Ecchymosis [Unknown]
  - Conjunctival haemorrhage [Unknown]
  - Anaemia [Not Recovered/Not Resolved]
  - Thrombocytopenia [Recovered/Resolved]
  - Epistaxis [Unknown]
  - Subcutaneous haematoma [Unknown]

NARRATIVE: CASE EVENT DATE: 20170113
